FAERS Safety Report 9865116 (Version 2)
Quarter: 2014Q2

REPORT INFORMATION
  Report Type: Spontaneous
  Country: US (occurrence: US)
  Receive Date: 20140203
  Receipt Date: 20140404
  Transmission Date: 20141212
  Serious: Yes (Other)
  Sender: FDA-Public Use
  Company Number: ALCN2014US000949

PATIENT
  Age: 72 Year
  Sex: Female
  Weight: 46.26 kg

DRUGS (3)
  1. SIMBRINZA [Suspect]
     Indication: INTRAOCULAR PRESSURE INCREASED
     Dosage: 1 GTT, TID
     Route: 047
     Dates: start: 20140113, end: 20140115
  2. SIMBRINZA [Suspect]
     Dosage: 1 GTT, TID
     Route: 047
     Dates: start: 20140117, end: 20140120
  3. TRAVATAN Z [Suspect]
     Indication: INTRAOCULAR PRESSURE INCREASED
     Dosage: 1 GTT, QHS
     Route: 047

REACTIONS (1)
  - Blood pressure decreased [Recovered/Resolved]
